FAERS Safety Report 9992701 (Version 1)
Quarter: 2014Q1

REPORT INFORMATION
  Report Type: Spontaneous
  Country: BR (occurrence: BR)
  Receive Date: 20140310
  Receipt Date: 20140310
  Transmission Date: 20141002
  Serious: Yes (Hospitalization)
  Sender: FDA-Public Use
  Company Number: PHHY2014BR028491

PATIENT
  Age: 31 Year
  Sex: Male

DRUGS (6)
  1. TEGRETOL [Suspect]
     Indication: CONVULSION
     Dosage: 2 DF (2 TABLETS), DAILY
     Route: 048
  2. TEGRETOL [Suspect]
     Indication: CONVULSION
  3. TEGRETOL-XR [Suspect]
     Indication: CONVULSION
     Dosage: 2 DF(2 TABLETS OF 200 MG), DAILY
     Route: 048
  4. TEGRETOL-XR [Suspect]
     Dosage: 2 DF(2 TABLETS OF 400 MG), DAILY
     Route: 048
  5. TEGRETOL-XR [Suspect]
     Dosage: 3 DF (3 TABLETS OF 400 MG), DAILY
     Route: 048
  6. TEGRETOL-XR [Suspect]
     Dosage: 3 DF (3 TABLETS OF 400 MG), DAILY
     Route: 065

REACTIONS (4)
  - Asthma [Recovered/Resolved]
  - Nasopharyngitis [Not Recovered/Not Resolved]
  - Convulsion [Recovered/Resolved]
  - Incorrect route of drug administration [Unknown]
